FAERS Safety Report 5890099-8 (Version None)
Quarter: 2008Q3

REPORT INFORMATION
  Report Type: 
  Country: None (occurrence: None)
  Receive Date: 20080919
  Receipt Date: 20080910
  Transmission Date: 20090109
  Serious: Yes (Other)
  Sender: FDA-Public Use
  Company Number: CA-JNJCH-2008023823

PATIENT
  Sex: Female

DRUGS (1)
  1. LISTERINE WHITENING PRE-BRUSH RINSE [Suspect]
     Indication: DRUG USE FOR UNKNOWN INDICATION
     Dosage: TEXT:UNSPECIFIED 2X
     Route: 048
     Dates: start: 20080827, end: 20080904

REACTIONS (4)
  - AGEUSIA [None]
  - FEELING COLD [None]
  - ORAL MUCOSAL EXFOLIATION [None]
  - SENSITIVITY OF TEETH [None]
